FAERS Safety Report 7419160-3 (Version None)
Quarter: 2011Q2

REPORT INFORMATION
  Report Type: 
  Country: None (occurrence: None)
  Receive Date: 20110415
  Receipt Date: 20110404
  Transmission Date: 20111010
  Serious: Yes (Hospitalization)
  Sender: FDA-Public Use
  Company Number: NL-BAYER-2011-026740

PATIENT
  Age: 73 Year
  Sex: Male
  Weight: 101.2 kg

DRUGS (10)
  1. PERINDOPRIL [Concomitant]
  2. CLOPIDOGREL [Suspect]
     Indication: ACUTE CORONARY SYNDROME
     Dosage: 75 MG, UNK
     Dates: start: 20100315, end: 20110318
  3. CLOPIDOGREL [Suspect]
     Dates: end: 20100311
  4. AMLODIPINE [Concomitant]
  5. ASPIRIN [Suspect]
     Indication: ACUTE CORONARY SYNDROME
     Dates: start: 20100315
  6. METOPROLOL TARTRATE [Concomitant]
  7. RIVAROXABAN [Suspect]
     Indication: ACUTE CORONARY SYNDROME
     Dosage: UNK
     Route: 048
     Dates: start: 20100315, end: 20100317
  8. PANTOPRAZOLE [Concomitant]
  9. ROSUVASTATIN [Concomitant]
  10. ASPIRIN [Suspect]
     Dates: end: 20100311

REACTIONS (1)
  - HAEMOGLOBIN DECREASED [None]
